FAERS Safety Report 21563844 (Version 1)
Quarter: 2022Q4

REPORT INFORMATION
  Report Type: Spontaneous
  Country: GB (occurrence: GB)
  Receive Date: 20221108
  Receipt Date: 20221108
  Transmission Date: 20230112
  Serious: Yes (Other)
  Sender: FDA-Public Use
  Company Number: None

PATIENT
  Age: 78 Year
  Sex: Male

DRUGS (1)
  1. ENOXAPARIN SODIUM [Suspect]
     Active Substance: ENOXAPARIN SODIUM
     Indication: Thrombosis prophylaxis
     Dosage: 4000 IU (40MG/0.4 ML)
     Route: 058
     Dates: start: 20220814, end: 20220816

REACTIONS (3)
  - Presyncope [Unknown]
  - Malaise [Unknown]
  - Syncope [Recovered/Resolved]
